FAERS Safety Report 5043879-5 (Version None)
Quarter: 2006Q3

REPORT INFORMATION
  Report Type: 
  Country: None (occurrence: None)
  Receive Date: 20060706
  Receipt Date: 20060630
  Transmission Date: 20061208
  Serious: Yes (Hospitalization)
  Sender: FDA-Public Use
  Company Number: BW-BRISTOL-MYERS SQUIBB COMPANY-13430012

PATIENT
  Age: 53 Year
  Sex: Male

DRUGS (2)
  1. EFAVIRENZ [Suspect]
     Indication: HIV INFECTION
     Route: 048
     Dates: start: 20060308
  2. COMBIVIR [Suspect]
     Indication: HIV INFECTION
     Dosage: LAMIVUDINE 100 MG / ZIDOVUDINE 180 MG
     Route: 048
     Dates: start: 20060308, end: 20060608

REACTIONS (1)
  - ANAEMIA [None]
